FAERS Safety Report 16273062 (Version 18)
Quarter: 2023Q4

REPORT INFORMATION
  Report Type: Report from Study
  Country: JP (occurrence: JP)
  Receive Date: 20190506
  Receipt Date: 20231103
  Transmission Date: 20240109
  Serious: Yes (Death, Hospitalization, Other)
  Sender: FDA-Public Use
  Company Number: JP-ASTELLAS-2019JP008022

PATIENT
  Age: 85 Year
  Sex: Male
  Weight: 55 kg

DRUGS (74)
  1. ENZALUTAMIDE [Suspect]
     Active Substance: ENZALUTAMIDE
     Indication: Prostate cancer
     Route: 048
     Dates: start: 20190222, end: 20190426
  2. ENZALUTAMIDE [Suspect]
     Active Substance: ENZALUTAMIDE
     Route: 048
     Dates: start: 20190427
  3. ENZALUTAMIDE [Suspect]
     Active Substance: ENZALUTAMIDE
     Indication: Prostate cancer
     Route: 065
     Dates: start: 20200515, end: 20210621
  4. FUROSEMIDE [Concomitant]
     Active Substance: FUROSEMIDE
     Indication: Cardiac failure chronic
     Route: 048
     Dates: start: 2007, end: 20210624
  5. FUROSEMIDE [Concomitant]
     Active Substance: FUROSEMIDE
     Route: 048
     Dates: start: 20210701
  6. LORMETAZEPAM [Concomitant]
     Active Substance: LORMETAZEPAM
     Indication: Insomnia
     Route: 048
     Dates: start: 2007, end: 20210624
  7. SPIRIVA [Concomitant]
     Active Substance: TIOTROPIUM BROMIDE MONOHYDRATE
     Indication: Chronic obstructive pulmonary disease
     Route: 050
     Dates: start: 2007, end: 20210724
  8. Depas [Concomitant]
     Indication: Insomnia
     Dosage: 0.5 MG, AS NEEDED
     Route: 048
     Dates: start: 2007, end: 20210624
  9. Alosenn [Concomitant]
     Indication: Constipation
     Dosage: 0.5 G, ONCE DAILY
     Route: 048
     Dates: start: 2007, end: 20180528
  10. Alosenn [Concomitant]
     Dosage: 0.5 G, ONCE DAILY
     Route: 048
  11. SULTANOL [Concomitant]
     Active Substance: ALBUTEROL SULFATE
     Indication: Chronic obstructive pulmonary disease
     Route: 065
     Dates: start: 2007, end: 20180130
  12. SULTANOL [Concomitant]
     Active Substance: ALBUTEROL SULFATE
     Route: 065
  13. SYMBICORT [Concomitant]
     Active Substance: BUDESONIDE\FORMOTEROL FUMARATE DIHYDRATE
     Indication: Chronic obstructive pulmonary disease
     Dosage: ONE INHALATION, ONCE DAILY
     Route: 065
     Dates: start: 2007, end: 20180130
  14. SYMBICORT [Concomitant]
     Active Substance: BUDESONIDE\FORMOTEROL FUMARATE DIHYDRATE
     Dosage: ONE INHALATION, ONCE DAILY
     Route: 065
  15. CLARITHROMYCIN [Concomitant]
     Active Substance: CLARITHROMYCIN
     Indication: Chronic obstructive pulmonary disease
     Route: 048
     Dates: start: 2015
  16. CLARITHROMYCIN [Concomitant]
     Active Substance: CLARITHROMYCIN
     Route: 048
     Dates: start: 2019, end: 20210624
  17. RABEPRAZOLE SODIUM [Concomitant]
     Active Substance: RABEPRAZOLE SODIUM
     Indication: Prophylaxis
     Route: 048
     Dates: start: 20160928, end: 20210624
  18. MAGNESIUM OXIDE [Concomitant]
     Active Substance: MAGNESIUM OXIDE
     Indication: Constipation
     Route: 048
     Dates: start: 20170215
  19. MAGNESIUM OXIDE [Concomitant]
     Active Substance: MAGNESIUM OXIDE
     Route: 048
     Dates: start: 2019, end: 20210624
  20. MAGNESIUM OXIDE [Concomitant]
     Active Substance: MAGNESIUM OXIDE
     Route: 048
     Dates: start: 20210630
  21. DENOSUMAB [Concomitant]
     Active Substance: DENOSUMAB
     Indication: Prophylaxis
     Route: 058
     Dates: start: 20170217, end: 20210514
  22. SILODOSIN [Concomitant]
     Active Substance: SILODOSIN
     Indication: Dysuria
     Route: 048
     Dates: start: 20170317, end: 20210624
  23. WHITE PETROLATUM [Concomitant]
     Active Substance: PETROLATUM
     Indication: Bladder catheterisation
     Dosage: UNK UNK, UNKNOWN FREQ.
     Route: 065
     Dates: start: 20170317, end: 20170414
  24. WHITE PETROLATUM [Concomitant]
     Active Substance: PETROLATUM
     Indication: Pruritus
     Dosage: ADEQUATE DOSE, AS NEEDED
     Route: 061
     Dates: start: 20210707
  25. WHITE PETROLATUM [Concomitant]
     Active Substance: PETROLATUM
     Indication: Gangrene
  26. LOXOPROFEN SODIUM [Concomitant]
     Active Substance: LOXOPROFEN SODIUM
     Indication: Back pain
     Dosage: UNK UNK, AS NEEDED
     Route: 050
     Dates: start: 20170414
  27. CARBOCYSTEINE [Concomitant]
     Active Substance: CARBOCYSTEINE
     Indication: Chronic obstructive pulmonary disease
     Route: 048
     Dates: start: 20180130
  28. CARBOCYSTEINE [Concomitant]
     Active Substance: CARBOCYSTEINE
     Route: 048
     Dates: start: 2019, end: 20201022
  29. CARBOCYSTEINE [Concomitant]
     Active Substance: CARBOCYSTEINE
     Dosage: UNK UNK, UNKNOWN FREQ.
     Route: 048
     Dates: start: 20210120, end: 20210523
  30. CARBOCYSTEINE [Concomitant]
     Active Substance: CARBOCYSTEINE
     Dosage: UNK UNK, UNKNOWN FREQ.
     Route: 048
     Dates: start: 20210620, end: 20210624
  31. CARBOCYSTEINE [Concomitant]
     Active Substance: CARBOCYSTEINE
     Route: 048
     Dates: start: 20210630
  32. FEXOFENADINE HYDROCHLORIDE [Concomitant]
     Active Substance: FEXOFENADINE HYDROCHLORIDE
     Indication: Skin disorder prophylaxis
     Route: 048
     Dates: start: 20180707, end: 20210624
  33. FEXOFENADINE HYDROCHLORIDE [Concomitant]
     Active Substance: FEXOFENADINE HYDROCHLORIDE
     Dosage: UNK UNK, UNKNOWN FREQ.
     Route: 048
     Dates: start: 20210630, end: 20210714
  34. ZOLPIDEM TARTRATE [Concomitant]
     Active Substance: ZOLPIDEM TARTRATE
     Indication: Insomnia
     Dosage: UNK UNK, UNKNOWN FREQ.
     Route: 048
     Dates: start: 20191011, end: 20200123
  35. ZOLPIDEM TARTRATE [Concomitant]
     Active Substance: ZOLPIDEM TARTRATE
     Route: 048
     Dates: start: 20200313, end: 20210624
  36. DEXTROMETHORPHAN HYDROBROMIDE [Concomitant]
     Active Substance: DEXTROMETHORPHAN HYDROBROMIDE
     Indication: Chronic obstructive pulmonary disease
     Route: 048
     Dates: start: 2019
  37. DEXTROMETHORPHAN HYDROBROMIDE [Concomitant]
     Active Substance: DEXTROMETHORPHAN HYDROBROMIDE
     Route: 048
     Dates: start: 20191226, end: 20210624
  38. DEXTROMETHORPHAN HYDROBROMIDE [Concomitant]
     Active Substance: DEXTROMETHORPHAN HYDROBROMIDE
     Dosage: UNK UNK, UNKNOWN FREQ.
     Route: 048
     Dates: start: 20210630, end: 20210714
  39. PENTOSAN POLYSULFATE SODIUM [Concomitant]
     Active Substance: PENTOSAN POLYSULFATE SODIUM
     Indication: Pruritus
     Dosage: ADEQUATE DOSE, AS NEEDED
     Route: 061
     Dates: start: 20200710, end: 20210624
  40. Lecicarbon [Concomitant]
     Indication: Constipation
     Route: 054
     Dates: start: 20200716, end: 20210615
  41. SENNOSIDES [Concomitant]
     Active Substance: SENNOSIDES
     Indication: Constipation
     Route: 048
     Dates: start: 20201127, end: 20210624
  42. SENNOSIDES [Concomitant]
     Active Substance: SENNOSIDES
     Route: 048
     Dates: start: 20210630
  43. CALONAL [Concomitant]
     Active Substance: ACETAMINOPHEN
     Indication: Back pain
     Route: 048
     Dates: start: 20201115
  44. CALONAL [Concomitant]
     Active Substance: ACETAMINOPHEN
     Indication: Pneumonia aspiration
     Dosage: UNK UNK, UNKNOWN FREQ.
     Route: 048
     Dates: start: 20210709
  45. HERBALS [Concomitant]
     Active Substance: HERBALS
     Indication: Decreased appetite
     Route: 048
     Dates: start: 20210420, end: 20210624
  46. HERBALS [Concomitant]
     Active Substance: HERBALS
     Route: 048
     Dates: start: 20210630
  47. HERBALS [Concomitant]
     Active Substance: HERBALS
     Dosage: UNK UNK, UNKNOWN FREQ.
     Route: 048
     Dates: start: 20210701
  48. AMINO ACIDS\DEXTROSE\ELECTROLYTES NOS\VITAMINS [Concomitant]
     Active Substance: AMINO ACIDS\DEXTROSE\ELECTROLYTES NOS\VITAMINS
     Indication: Decreased appetite
     Dosage: UNK UNK, UNKNOWN FREQ.
     Route: 042
     Dates: start: 20210616, end: 20210618
  49. HERBALS [Concomitant]
     Active Substance: HERBALS
     Indication: Constipation
     Route: 048
     Dates: start: 20210616
  50. HERBALS [Concomitant]
     Active Substance: HERBALS
     Dosage: UNK UNK, UNKNOWN FREQ.
     Route: 048
     Dates: start: 20210618, end: 20210624
  51. HERBALS [Concomitant]
     Active Substance: HERBALS
     Route: 048
     Dates: start: 20210630
  52. HERBALS [Concomitant]
     Active Substance: HERBALS
     Dosage: UNK UNK, UNKNOWN FREQ.
     Route: 048
     Dates: start: 20210701
  53. CEFTRIAXONE SODIUM [Concomitant]
     Active Substance: CEFTRIAXONE SODIUM
     Indication: Pneumonia aspiration
     Dosage: UNK UNK, UNKNOWN FREQ.
     Route: 042
     Dates: start: 20210624, end: 20210625
  54. CEFTRIAXONE SODIUM [Concomitant]
     Active Substance: CEFTRIAXONE SODIUM
     Dosage: UNK UNK, UNKNOWN FREQ.
     Route: 042
     Dates: start: 20210629, end: 20210708
  55. ACETAMINOPHEN [Concomitant]
     Active Substance: ACETAMINOPHEN
     Indication: Pneumonia aspiration
     Dosage: UNK UNK, UNKNOWN FREQ.
     Route: 042
     Dates: start: 20210624, end: 20210624
  56. MEROPENEM [Concomitant]
     Active Substance: MEROPENEM
     Indication: Pneumonia aspiration
     Dosage: UNK UNK, UNKNOWN FREQ.
     Route: 042
     Dates: start: 20210625, end: 20210628
  57. SOLDEM 3AG [Concomitant]
     Indication: Decreased appetite
     Dosage: UNK UNK, UNKNOWN FREQ.
     Route: 042
     Dates: start: 20210615, end: 20210618
  58. SOLDEM 3AG [Concomitant]
     Route: 042
     Dates: start: 20210625
  59. HYDROXYZINE PAMOATE [Concomitant]
     Active Substance: HYDROXYZINE PAMOATE
     Indication: Pneumonia aspiration
     Dosage: UNK UNK, UNKNOWN FREQ.
     Route: 042
     Dates: start: 20210627, end: 20210627
  60. HALOPERIDOL [Concomitant]
     Active Substance: HALOPERIDOL
     Indication: Insomnia
     Dosage: UNK UNK, UNKNOWN FREQ.
     Route: 042
     Dates: start: 20210628, end: 20210629
  61. VEEN D [Concomitant]
     Active Substance: CALCIUM CHLORIDE\DEXTROSE\POTASSIUM CHLORIDE\SODIUM ACETATE\SODIUM CHLORIDE
     Indication: Pneumonia aspiration
     Dosage: UNK UNK, UNKNOWN FREQ.
     Route: 042
     Dates: start: 20210628, end: 20210628
  62. QUETIAPINE [Concomitant]
     Active Substance: QUETIAPINE
     Indication: Insomnia
     Route: 048
     Dates: start: 20210629
  63. QUETIAPINE [Concomitant]
     Active Substance: QUETIAPINE
     Route: 048
     Dates: start: 20210702
  64. CEFAZOLIN SODIUM [Concomitant]
     Active Substance: CEFAZOLIN SODIUM
     Indication: Product used for unknown indication
     Dosage: UNK UNK, UNKNOWN FREQ.
     Route: 065
     Dates: start: 20210629, end: 20210708
  65. LANSOPRAZOLE [Concomitant]
     Active Substance: LANSOPRAZOLE
     Indication: Prophylaxis
     Dosage: UNK UNK, UNKNOWN FREQ.
     Route: 048
     Dates: start: 20210630
  66. RABEPRAZOLE SODIUM [Concomitant]
     Active Substance: RABEPRAZOLE SODIUM
     Indication: Prophylaxis
     Route: 048
     Dates: start: 20210630
  67. Azunol [Concomitant]
     Indication: Decreased appetite
     Dosage: ADEQUATE DOSE, AS NEEDED
     Route: 061
     Dates: start: 20210707
  68. Azunol [Concomitant]
     Indication: Gangrene
  69. SILVER SULFADIAZINE [Concomitant]
     Active Substance: SILVER SULFADIAZINE
     Indication: Decreased appetite
     Dosage: ADEQUATE DOSE, AS NEEDED
     Route: 061
     Dates: start: 20210708
  70. SILVER SULFADIAZINE [Concomitant]
     Active Substance: SILVER SULFADIAZINE
     Indication: Gangrene
  71. AMBROXOL HYDROCHLORIDE [Concomitant]
     Active Substance: AMBROXOL HYDROCHLORIDE
     Indication: Pneumonia aspiration
     Dosage: UNK UNK, UNKNOWN FREQ.
     Route: 048
     Dates: start: 20210708, end: 20210714
  72. CALCIUM CHLORIDE\POTASSIUM CHLORIDE\SODIUM CHLORIDE\SODIUM LACTATE [Concomitant]
     Active Substance: CALCIUM CHLORIDE\POTASSIUM CHLORIDE\SODIUM CHLORIDE\SODIUM LACTATE
     Indication: Decreased appetite
     Route: 042
     Dates: start: 20210615, end: 20210615
  73. CALCIUM CHLORIDE\POTASSIUM CHLORIDE\SODIUM CHLORIDE\SODIUM LACTATE [Concomitant]
     Active Substance: CALCIUM CHLORIDE\POTASSIUM CHLORIDE\SODIUM CHLORIDE\SODIUM LACTATE
     Dosage: UNK UNK, UNKNOWN FREQ.
     Route: 042
     Dates: start: 20210619, end: 20210701
  74. LEVOFLOXACIN HEMIHYDRATE [Concomitant]
     Active Substance: LEVOFLOXACIN
     Indication: Pneumonia aspiration
     Route: 048
     Dates: start: 20210709, end: 20210713

REACTIONS (13)
  - Hepatic function abnormal [Recovering/Resolving]
  - Pneumonia aspiration [Fatal]
  - Non-small cell lung cancer [Not Recovered/Not Resolved]
  - Pneumothorax [Recovering/Resolving]
  - Pneumothorax [Recovered/Resolved]
  - Decreased appetite [Not Recovered/Not Resolved]
  - Hepatic function abnormal [Not Recovered/Not Resolved]
  - Pleural effusion [Not Recovered/Not Resolved]
  - Ascites [Not Recovered/Not Resolved]
  - Pruritus [Not Recovered/Not Resolved]
  - Weight decreased [Not Recovered/Not Resolved]
  - Generalised oedema [Not Recovered/Not Resolved]
  - Gangrene [Not Recovered/Not Resolved]

NARRATIVE: CASE EVENT DATE: 20190426
